FAERS Safety Report 20650105 (Version 1)
Quarter: 2022Q1

REPORT INFORMATION
  Report Type: Spontaneous
  Country: US (occurrence: None)
  Receive Date: 20220329
  Receipt Date: 20220329
  Transmission Date: 20220424
  Serious: Yes (Hospitalization, Other)
  Sender: FDA-Public Use
  Company Number: 2022A125104

PATIENT
  Age: 86 Year
  Sex: Male
  Weight: 68 kg

DRUGS (3)
  1. ANDEXANET ALFA [Suspect]
     Active Substance: ANDEXANET ALFA
     Indication: Haemorrhage
     Dosage: UNKNOWN
     Route: 042
  2. COAGULATION FACTOR IX HUMAN\COAGULATION FACTOR VII HUMAN\COAGULATION F [Suspect]
     Active Substance: COAGULATION FACTOR IX HUMAN\COAGULATION FACTOR VII HUMAN\COAGULATION FACTOR X HUMAN\PROTEIN C\PROTEI
     Indication: Haemorrhage
     Dosage: UNKNOWN
     Route: 065
  3. RIVAROXABAN [Suspect]
     Active Substance: RIVAROXABAN
     Dosage: UNKNOWN
     Route: 065

REACTIONS (1)
  - Haemoglobin decreased [Unknown]
